FAERS Safety Report 12871032 (Version 1)
Quarter: 2016Q4

REPORT INFORMATION
  Report Type: Spontaneous
  Country: US (occurrence: US)
  Receive Date: 20161020
  Receipt Date: 20161020
  Transmission Date: 20170207
  Serious: No
  Sender: FDA-Public Use
  Company Number: None

PATIENT
  Age: 64 Year
  Sex: Female

DRUGS (1)
  1. COPAXONE [Suspect]
     Active Substance: GLATIRAMER ACETATE
     Indication: MULTIPLE SCLEROSIS
     Route: 058
     Dates: start: 20160217, end: 20160914

REACTIONS (5)
  - Nasal congestion [None]
  - Throat tightness [None]
  - Muscle spasms [None]
  - Hot flush [None]
  - Tremor [None]

NARRATIVE: CASE EVENT DATE: 20160901
